FAERS Safety Report 7170743-8 (Version None)
Quarter: 2010Q4

REPORT INFORMATION
  Report Type: 
  Country: None (occurrence: None)
  Receive Date: 20101206
  Receipt Date: 20101123
  Transmission Date: 20110411
  Serious: Yes (Other)
  Sender: FDA-Public Use
  Company Number: 761095

PATIENT
  Age: 83 Year
  Sex: Female
  Weight: 72.57 kg

DRUGS (1)
  1. VANCOMYCIN HYDROCHLORIDE (STERILE) USP, 1 GRAM GLASS FT VIAL (VANCOMYC [Suspect]
     Indication: STAPHYLOCOCCAL INFECTION
     Dosage: 1 GM,ONCE, INTRAVENOUS
     Route: 042

REACTIONS (2)
  - INFUSION SITE PAIN [None]
  - INFUSION SITE PRURITUS [None]
